FAERS Safety Report 7862500 (Version 2)
Quarter: 2013Q1

REPORT INFORMATION
  Report Type: Spontaneous
  Country: JP (occurrence: JP)
  Receive Date: 20110318
  Receipt Date: 20130130
  Transmission Date: 20140127
  Serious: Yes (Hospitalization)
  Sender: FDA-Public Use
  Company Number: JP-ELI_LILLY_AND_COMPANY-JP201103003417

PATIENT
  Age: 75 Year
  Sex: Female

DRUGS (1)
  1. FORTEO [Suspect]
     Route: 058
     Dates: start: 201102

REACTIONS (7)
  - Fall [Recovered/Resolved]
  - Contusion [Unknown]
  - Injection site bruising [Unknown]
  - Rash [Unknown]
  - Malaise [Unknown]
  - Fall [Recovered/Resolved]
  - Face injury [Unknown]
